FAERS Safety Report 5390728-1 (Version None)
Quarter: 2007Q3

REPORT INFORMATION
  Report Type: 
  Country: None (occurrence: None)
  Receive Date: 20070716
  Receipt Date: 20060123
  Transmission Date: 20080115
  Serious: Yes (Death)
  Sender: FDA-Public Use
  Company Number: MPS1-10493

PATIENT
  Age: 11 Month
  Sex: Female

DRUGS (1)
  1. ALDURAZYME [Suspect]
     Indication: MUCOPOLYSACCHARIDOSIS IH
     Dosage: 1 MG/KG QWK IV
     Route: 042
     Dates: start: 20040713, end: 20041001

REACTIONS (2)
  - BONE MARROW TRANSPLANT [None]
  - HAEMOLYTIC ANAEMIA [None]
